FAERS Safety Report 6545553-2 (Version None)
Quarter: 2010Q1

REPORT INFORMATION
  Report Type: 
  Country: None (occurrence: None)
  Receive Date: 20100121
  Receipt Date: 20100112
  Transmission Date: 20100710
  Serious: Yes (Hospitalization)
  Sender: FDA-Public Use
  Company Number: US-PFIZER INC-2009273867

PATIENT
  Sex: Female
  Weight: 55.3 kg

DRUGS (19)
  1. AXITINIB [Suspect]
     Indication: COLORECTAL CANCER METASTATIC
     Dosage: 2 MG, 2X/DAY
     Route: 048
     Dates: start: 20080818
  2. WELLCOVORIN [Suspect]
     Indication: COLORECTAL CANCER METASTATIC
     Dosage: 616 MG, EVERY TWO WEEKS
     Route: 042
     Dates: start: 20080818, end: 20090916
  3. FLUOROURACIL [Suspect]
     Indication: COLORECTAL CANCER METASTATIC
     Dosage: 615 MG, EVERY TWO WEEKS BLOUS
     Route: 042
     Dates: start: 20080818, end: 20090916
  4. FLUOROURACIL [Suspect]
     Dosage: 3695 MG, EVERY TWO WEEKS, 46-48 INFUSION
     Route: 042
     Dates: start: 20080818, end: 20090918
  5. IRINOTECAN HCL [Suspect]
     Indication: COLORECTAL CANCER METASTATIC
     Dosage: 277 MG, EVERY TWO WEEKS
     Route: 042
     Dates: start: 20090902, end: 20090916
  6. HYDROCHLOROTHIAZIDE [Concomitant]
     Indication: HYPERTENSION
     Dosage: UNK
     Dates: start: 20070730
  7. ATIVAN [Concomitant]
     Indication: PROPHYLACTIC CHEMOTHERAPY
     Dosage: UNK
     Dates: start: 20080818
  8. ZOFRAN [Concomitant]
     Indication: PROPHYLACTIC CHEMOTHERAPY
     Dosage: UNK
     Dates: start: 20080818
  9. COMPAZINE [Concomitant]
     Indication: NAUSEA
     Dosage: UNK
     Dates: start: 20080829
  10. SIMETHICONE [Concomitant]
     Indication: ABDOMINAL DISTENSION
     Dosage: UNK
     Dates: start: 20081001
  11. POTASSIUM CHLORIDE [Concomitant]
     Indication: HYPOKALAEMIA
     Dosage: UNK
     Dates: start: 20081001
  12. SYNTHROID [Concomitant]
     Indication: HYPOTHYROIDISM
     Dosage: UNK
     Dates: start: 20081112
  13. HYDROCODONE [Concomitant]
     Indication: ABDOMINAL PAIN
     Dosage: UNK
     Dates: start: 20090226
  14. MILK OF MAGNESIA TAB [Concomitant]
     Indication: CONSTIPATION
     Dosage: UNK
     Dates: start: 20090610
  15. SODIUM CHLORIDE [Concomitant]
     Indication: POSTNASAL DRIP
     Dosage: UNK
     Dates: start: 20090624
  16. ATENOLOL [Concomitant]
     Indication: HYPERTENSION
     Dosage: UNK
     Dates: start: 20081014
  17. CODEINE W/GUAIFENESIN [Concomitant]
     Indication: COUGH
     Dosage: UNK
     Dates: start: 20090821
  18. ALOXI [Concomitant]
     Indication: ANTIEMETIC SUPPORTIVE CARE
     Dosage: UNK
     Dates: start: 20090902
  19. ATROPINE [Concomitant]
     Indication: PROPHYLACTIC CHEMOTHERAPY
     Dosage: UNK
     Dates: start: 20090902

REACTIONS (1)
  - PNEUMONIA [None]
